FAERS Safety Report 25219244 (Version 1)
Quarter: 2025Q2

REPORT INFORMATION
  Report Type: Spontaneous
  Country: US (occurrence: US)
  Receive Date: 20250421
  Receipt Date: 20250421
  Transmission Date: 20250717
  Serious: Yes (Hospitalization, Other)
  Sender: NOVITIUM PHARMA
  Company Number: US-NOVITIUMPHARMA-2025USNVP00931

PATIENT
  Age: 15 Year
  Sex: Male

DRUGS (6)
  1. LIDOCAINE HYDROCHLORIDE [Suspect]
     Active Substance: LIDOCAINE HYDROCHLORIDE
     Indication: Erythromelalgia
  2. LIDOCAINE HYDROCHLORIDE [Suspect]
     Active Substance: LIDOCAINE HYDROCHLORIDE
     Indication: Erythromelalgia
  3. KETAMINE [Concomitant]
     Active Substance: KETAMINE
  4. KETAMINE [Concomitant]
     Active Substance: KETAMINE
  5. MEXILETINE [Concomitant]
     Active Substance: MEXILETINE
     Route: 048
  6. MEXILETINE [Concomitant]
     Active Substance: MEXILETINE

REACTIONS (6)
  - Cardiogenic shock [Unknown]
  - Mental status changes [Unknown]
  - Hypertonia [Unknown]
  - Toxicity to various agents [Unknown]
  - Hypotension [Unknown]
  - Bradycardia [Unknown]
